FAERS Safety Report 21207289 (Version 1)
Quarter: 2022Q3

REPORT INFORMATION
  Report Type: Spontaneous
  Country: US (occurrence: US)
  Receive Date: 20220812
  Receipt Date: 20220812
  Transmission Date: 20221026
  Serious: Yes (Other)
  Sender: FDA-Public Use
  Company Number: US-TEVA-2022-US-2061374

PATIENT
  Age: 42 Year
  Sex: Male

DRUGS (2)
  1. AMPHETAMINE SULFATE\DEXTROAMPHETAMINE [Suspect]
     Active Substance: AMPHETAMINE SULFATE\DEXTROAMPHETAMINE
     Indication: Product used for unknown indication
     Route: 065
     Dates: start: 2018
  2. ALPRAZOLAM [Suspect]
     Active Substance: ALPRAZOLAM
     Indication: Product used for unknown indication
     Route: 065
     Dates: start: 2018

REACTIONS (4)
  - Loss of consciousness [Unknown]
  - Drug intolerance [Unknown]
  - Product taste abnormal [Unknown]
  - Vision blurred [Unknown]
